FAERS Safety Report 17218777 (Version 1)
Quarter: 2019Q4

REPORT INFORMATION
  Report Type: Spontaneous
  Country: US (occurrence: US)
  Receive Date: 20191231
  Receipt Date: 20191231
  Transmission Date: 20200122
  Serious: No
  Sender: FDA-Public Use
  Company Number: US-VERTEX PHARMACEUTICALS-2019-011779

PATIENT
  Age: 50 Year
  Sex: Female

DRUGS (1)
  1. TRIKAFTA [Suspect]
     Active Substance: ELEXACAFTOR\IVACAFTOR\TEZACAFTOR
     Indication: CYSTIC FIBROSIS
     Dosage: 100 MG ELEXACAFTOR/50 MG TEZACAFTOR/75 MG IVACAFTOR AND 150 MG IVACAFTOR (FREQ UNSP.)
     Route: 048
     Dates: start: 20191110, end: 2019

REACTIONS (3)
  - Rash erythematous [Unknown]
  - Productive cough [Unknown]
  - Rash [Unknown]

NARRATIVE: CASE EVENT DATE: 2019
